FAERS Safety Report 17096479 (Version 3)
Quarter: 2020Q2

REPORT INFORMATION
  Report Type: Spontaneous
  Country: CA (occurrence: CA)
  Receive Date: 20191202
  Receipt Date: 20200422
  Transmission Date: 20200713
  Serious: Yes (Other)
  Sender: FDA-Public Use
  Company Number: CA-BEH-2019109934

PATIENT
  Age: 52 Year
  Sex: Male

DRUGS (1)
  1. ALBUREX [Suspect]
     Active Substance: ALBUMIN HUMAN
     Indication: ANAEMIA
     Dosage: 4/4
     Route: 065
     Dates: start: 20191117, end: 20191117

REACTIONS (11)
  - Anxiety [Unknown]
  - No adverse event [Unknown]
  - Dyspnoea [Unknown]
  - Product use in unapproved indication [Unknown]
  - Pyrexia [Unknown]
  - Localised infection [Unknown]
  - Tachypnoea [Unknown]
  - Chills [Unknown]
  - Acute pulmonary oedema [Unknown]
  - Pleural effusion [Unknown]
  - Wound [Unknown]

NARRATIVE: CASE EVENT DATE: 201911
